FAERS Safety Report 5471729-1 (Version None)
Quarter: 2007Q3

REPORT INFORMATION
  Report Type: 
  Country: None (occurrence: None)
  Receive Date: 20070928
  Receipt Date: 20070426
  Transmission Date: 20080115
  Serious: No
  Sender: FDA-Public Use
  Company Number: US-BRISTOL-MYERS SQUIBB COMPANY-13762125

PATIENT
  Age: 70 Year
  Sex: Female
  Weight: 101 kg

DRUGS (22)
  1. DEFINITY [Suspect]
     Indication: CARDIAC PHARMACOLOGIC STRESS TEST
     Route: 042
     Dates: start: 20070426, end: 20070426
  2. ADVAIR DISKUS 100/50 [Concomitant]
  3. OMEPRAZOLE [Concomitant]
  4. SPIRIVA [Concomitant]
  5. COUMADIN [Concomitant]
  6. NITROGLYCERIN SL [Concomitant]
  7. LOVENOX [Concomitant]
  8. ACETAMINOPHEN [Concomitant]
  9. TRICOR [Concomitant]
  10. TOPROL-XL [Concomitant]
  11. ZOLOFT [Concomitant]
  12. AMBIEN [Concomitant]
  13. ALPRAZOLAM [Concomitant]
  14. DIGOXIN [Concomitant]
  15. LISINOPRIL [Concomitant]
  16. CARDIZEM [Concomitant]
  17. LEVOTHYROXINE SODIUM [Concomitant]
  18. MECLIZINE [Concomitant]
  19. K-DUR 10 [Concomitant]
  20. LASIX [Concomitant]
  21. NOVOLIN 50/50 [Concomitant]
  22. HUMULIN R [Concomitant]

REACTIONS (1)
  - BACK PAIN [None]
